FAERS Safety Report 24962692 (Version 1)
Quarter: 2025Q1

REPORT INFORMATION
  Report Type: Report from Study
  Country: CA (occurrence: CA)
  Receive Date: 20250212
  Receipt Date: 20250212
  Transmission Date: 20250408
  Serious: Yes (Hospitalization)
  Sender: ABBVIE
  Company Number: CA-ABBVIE-6130246

PATIENT
  Sex: Male

DRUGS (1)
  1. RINVOQ [Suspect]
     Active Substance: UPADACITINIB
     Indication: Crohn^s disease
     Dosage: TAKE 2TABLETS (=30MG) ORALLY ONCE DAILY, FORM STRENGTH: 15 MG
     Route: 048

REACTIONS (3)
  - Systemic infection [Recovering/Resolving]
  - Abscess [Recovering/Resolving]
  - Lymphocyte count decreased [Recovered/Resolved]
